FAERS Safety Report 19202170 (Version 1)
Quarter: 2021Q2

REPORT INFORMATION
  Report Type: Spontaneous
  Country: GB (occurrence: GB)
  Receive Date: 20210430
  Receipt Date: 20210430
  Transmission Date: 20210717
  Serious: Yes (Hospitalization, Disabling)
  Sender: FDA-Public Use
  Company Number: GB-TEVA-2021-GB-1906031

PATIENT
  Age: 70 Year
  Sex: Male
  Weight: 79 kg

DRUGS (1)
  1. SUMATRIPTAN. [Suspect]
     Active Substance: SUMATRIPTAN
     Dosage: 50 MILLIGRAM DAILY; AT NIGHT
     Dates: start: 20210416, end: 20210417

REACTIONS (8)
  - Nasopharyngitis [Recovered/Resolved]
  - Peripheral coldness [Recovered/Resolved]
  - Headache [Recovering/Resolving]
  - Confusional state [Recovered/Resolved]
  - Aggression [Recovered/Resolved]
  - Balance disorder [Recovered/Resolved]
  - Paraesthesia [Recovered/Resolved]
  - Anxiety [Recovered/Resolved]

NARRATIVE: CASE EVENT DATE: 20210416
